FAERS Safety Report 9158626 (Version 1)
Quarter: 2013Q1

REPORT INFORMATION
  Report Type: Spontaneous
  Country: US (occurrence: US)
  Receive Date: 20130312
  Receipt Date: 20130312
  Transmission Date: 20140127
  Serious: Yes (Other)
  Sender: FDA-Public Use
  Company Number: PHHY2013US022838

PATIENT
  Age: 11 Month
  Sex: Male

DRUGS (8)
  1. FENTANYL [Suspect]
     Indication: SEDATION
     Dosage: 6 UG/KG, UNK
     Route: 042
  2. MORPHINE [Suspect]
     Indication: SEDATION
     Dosage: 0.2 MG/KG (0.05 TO 0.2 MG/KG/HR)
     Route: 042
  3. MORPHINE [Suspect]
     Dosage: 3 MG PER DAY
     Route: 042
  4. MIDAZOLAM [Suspect]
     Indication: SEDATION
     Dosage: 0.25 MG/KG (0.15-0.25 MG/KG/H)
     Route: 042
  5. MIDAZOLAM [Suspect]
     Dosage: 0.1 MG/KG, UNK
     Route: 042
  6. METHADONE [Suspect]
  7. LORAZEPAM [Suspect]
  8. PENTOBARBITAL [Suspect]
     Indication: SEDATION
     Dosage: 3 MG/KG (0.25-3 MG/KG/H)
     Route: 042

REACTIONS (9)
  - Pyrexia [Recovered/Resolved]
  - Insomnia [Recovered/Resolved]
  - Restlessness [Recovered/Resolved]
  - Agitation [Recovered/Resolved]
  - Feeling jittery [Recovered/Resolved]
  - Crying [Recovered/Resolved]
  - Chorea [Recovered/Resolved]
  - Akathisia [Recovered/Resolved]
  - Withdrawal syndrome [Recovered/Resolved]
